FAERS Safety Report 6598868-6 (Version None)
Quarter: 2010Q1

REPORT INFORMATION
  Report Type: 
  Country: None (occurrence: None)
  Receive Date: 20100224
  Receipt Date: 20090522
  Transmission Date: 20100710
  Serious: No
  Sender: FDA-Public Use
  Company Number: US-BRISTOL-MYERS SQUIBB COMPANY-11742723

PATIENT
  Age: 81 Year
  Sex: Male
  Weight: 73 kg

DRUGS (7)
  1. GLUCOPHAGE [Suspect]
     Indication: DIABETES MELLITUS
     Dosage: RECENTLY TAKING 4 TABLETS DAILY ; DURATION 6 YEARS.
     Route: 048
     Dates: start: 20011001, end: 20020220
  2. CAPITROL [Concomitant]
  3. HYDROCHLOROTHIAZIDE [Concomitant]
  4. LOPID [Concomitant]
  5. STEROID CREAM [Concomitant]
  6. LOTREL [Concomitant]
  7. LASIX [Concomitant]

REACTIONS (4)
  - DIARRHOEA [None]
  - FLUID RETENTION [None]
  - NAUSEA [None]
  - RASH [None]
